FAERS Safety Report 5003181-4 (Version None)
Quarter: 2006Q2

REPORT INFORMATION
  Report Type: 
  Country: None (occurrence: None)
  Receive Date: 20060510
  Receipt Date: 20060503
  Transmission Date: 20061013
  Serious: Yes (Death)
  Sender: FDA-Public Use
  Company Number: 200610548BNE

PATIENT
  Sex: Male

DRUGS (2)
  1. NIFEDIPINE [Suspect]
     Dosage: 30 MG, TOTAL DAILY,
  2. ATENOLOL [Suspect]
     Dosage: 100 MG, TOTAL DAILY,

REACTIONS (1)
  - DEATH [None]
